FAERS Safety Report 10243076 (Version 2)
Quarter: 2014Q3

REPORT INFORMATION
  Report Type: Report from Study
  Country: AU (occurrence: None)
  Receive Date: 20140613
  Receipt Date: 20140710
  Transmission Date: 20150326
  Serious: Yes (Hospitalization, Other)
  Sender: FDA-Public Use
  Company Number: 2014-19700

PATIENT
  Age: 66 Year
  Sex: Male

DRUGS (3)
  1. PLAVIX (CLOPIDOGREL BISULFATE) [Concomitant]
  2. ASPIRIN (ACETYLSALICYLIC ACID) [Concomitant]
     Active Substance: ASPIRIN
  3. EYLEA [Suspect]
     Active Substance: AFLIBERCEPT
     Indication: AGE-RELATED MACULAR DEGENERATION
     Route: 031
     Dates: start: 20140227

REACTIONS (3)
  - Malaise [None]
  - Coronary arterial stent insertion [None]
  - Drug dose omission [None]

NARRATIVE: CASE EVENT DATE: 20140519
